FAERS Safety Report 9847332 (Version 2)
Quarter: 2014Q1

REPORT INFORMATION
  Report Type: Report from Study
  Country: HU (occurrence: HU)
  Receive Date: 20140127
  Receipt Date: 20140127
  Transmission Date: 20141002
  Serious: Yes (Hospitalization)
  Sender: FDA-Public Use
  Company Number: HU-ABBVIE-11P-076-0836217-00

PATIENT
  Age: 27 Year
  Sex: Female
  Weight: 43 kg

DRUGS (6)
  1. HUMIRA [Suspect]
     Indication: CROHN^S DISEASE
     Route: 058
     Dates: start: 20080715, end: 20080715
  2. HUMIRA [Suspect]
     Route: 058
     Dates: start: 200807, end: 200807
  3. HUMIRA [Suspect]
     Route: 058
     Dates: start: 200808, end: 20110311
  4. METHYLPREDNISOLON [Concomitant]
     Indication: IMMUNOSUPPRESSION
     Dates: start: 20070207
  5. AZATHIOPRINE [Concomitant]
     Indication: CROHN^S DISEASE
     Dates: start: 20051007
  6. BUDESONIDE [Concomitant]
     Indication: CROHN^S DISEASE

REACTIONS (1)
  - Crohn^s disease [Recovered/Resolved]
